FAERS Safety Report 12699610 (Version 1)
Quarter: 2016Q3

REPORT INFORMATION
  Report Type: Report from Study
  Country: DE (occurrence: DE)
  Receive Date: 20160830
  Receipt Date: 20160830
  Transmission Date: 20161109
  Serious: Yes (Other)
  Sender: FDA-Public Use
  Company Number: DE-JNJFOC-20160822591

PATIENT

DRUGS (4)
  1. VINBLASTINE [Suspect]
     Active Substance: VINBLASTINE
     Indication: HODGKIN^S DISEASE
     Dosage: 4-8 CYCLES, DOSE LEVELS RANGING FROM 5 TO 40 MG
     Route: 065
  2. LENALIDOMIDE [Suspect]
     Active Substance: LENALIDOMIDE
     Indication: HODGKIN^S DISEASE
     Dosage: 4-8 CYCLES, DOSE LEVELS RANGING FROM 5 TO 40 MG
     Route: 065
  3. DOXORUBICIN HYDROCHLORIDE. [Suspect]
     Active Substance: DOXORUBICIN HYDROCHLORIDE
     Indication: HODGKIN^S DISEASE
     Dosage: 4-8 CYCLES, DOSE LEVELS RANGING FROM 5 TO 40 MG
     Route: 065
  4. DACARBAZINE. [Suspect]
     Active Substance: DACARBAZINE
     Indication: HODGKIN^S DISEASE
     Dosage: 4-8 CYCLES, DOSE LEVELS RANGING FROM 5 TO 40 MG
     Route: 065

REACTIONS (3)
  - Toxicity to various agents [Unknown]
  - Haematotoxicity [Unknown]
  - Embolism [Unknown]
